FAERS Safety Report 15672933 (Version 7)
Quarter: 2020Q1

REPORT INFORMATION
  Report Type: Report from Study
  Country: US (occurrence: US)
  Receive Date: 20181129
  Receipt Date: 20200128
  Transmission Date: 20200409
  Serious: Yes (Other)
  Sender: FDA-Public Use
  Company Number: US-TESARO, INC-US-2018TSO02036

PATIENT
  Age: 75 Year
  Sex: Female
  Weight: 67.12 kg

DRUGS (6)
  1. NIRAPARIB [Suspect]
     Active Substance: NIRAPARIB
     Dosage: 200 MG, QD
     Route: 048
  2. NIRAPARIB [Suspect]
     Active Substance: NIRAPARIB
     Dosage: 200 MG, UNK
     Route: 048
  3. NIRAPARIB [Suspect]
     Active Substance: NIRAPARIB
     Dosage: 200 MG, QD, PM WITHOUT FOOD
     Route: 048
  4. SYNTHROID [Concomitant]
     Active Substance: LEVOTHYROXINE SODIUM
     Indication: PRODUCT USED FOR UNKNOWN INDICATION
     Dosage: UNK
  5. NIRAPARIB [Suspect]
     Active Substance: NIRAPARIB
     Dosage: 200 MG, QD
     Route: 048
  6. NIRAPARIB [Suspect]
     Active Substance: NIRAPARIB
     Indication: OVARIAN CANCER
     Dosage: 300 MG, QD
     Route: 048
     Dates: start: 20180403

REACTIONS (23)
  - Contusion [Not Recovered/Not Resolved]
  - Cardiac disorder [Unknown]
  - Middle insomnia [Unknown]
  - Arthralgia [Unknown]
  - Platelet count decreased [Recovered/Resolved]
  - Haematocrit increased [Unknown]
  - Fatigue [Not Recovered/Not Resolved]
  - Mean cell haemoglobin increased [Not Recovered/Not Resolved]
  - Laboratory test abnormal [Recovered/Resolved]
  - Atrial septal defect [Unknown]
  - Heart rate increased [Unknown]
  - Bile duct stone [Unknown]
  - White blood cell count decreased [Unknown]
  - Carbohydrate antigen 125 increased [Not Recovered/Not Resolved]
  - Dyspnoea [Unknown]
  - Dehydration [Unknown]
  - Blood pressure increased [Not Recovered/Not Resolved]
  - Urine output decreased [Unknown]
  - Blood potassium increased [Not Recovered/Not Resolved]
  - Alopecia [Unknown]
  - Insomnia [Not Recovered/Not Resolved]
  - Constipation [Not Recovered/Not Resolved]
  - Haemoglobin increased [Unknown]

NARRATIVE: CASE EVENT DATE: 20180419
